FAERS Safety Report 13003528 (Version 38)
Quarter: 2019Q1

REPORT INFORMATION
  Report Type: Spontaneous
  Country: CA (occurrence: CA)
  Receive Date: 20161206
  Receipt Date: 20190217
  Transmission Date: 20190417
  Serious: Yes (Hospitalization, Other)
  Sender: FDA-Public Use
  Company Number: CA-CELLTRION INC.-2016CA011048

PATIENT

DRUGS (73)
  1. INFLECTRA [Suspect]
     Active Substance: INFLIXIMAB-DYYB
     Dosage: 400 MG, EVERY 2, 6 WEEKS, THEN EVERY 8 WEEKS FOR 12 MONTHS
     Route: 042
     Dates: start: 20170104
  2. INFLECTRA [Suspect]
     Active Substance: INFLIXIMAB-DYYB
     Dosage: 400 MG EVERY 6 WEEKS
     Route: 042
     Dates: start: 20180419
  3. MIRAPEX [Concomitant]
     Active Substance: PRAMIPEXOLE DIHYDROCHLORIDE
     Dosage: 0.125 MG, UNK
  4. BETADINE [Concomitant]
     Active Substance: POVIDONE-IODINE
     Dosage: UNK
  5. LEFLUNOMIDE. [Concomitant]
     Active Substance: LEFLUNOMIDE
     Dosage: 20 MG, UNK
     Route: 048
  6. FIBER SMART [Concomitant]
     Dosage: 2 TABS OF 800 MG, 1X/DAY
     Route: 048
  7. INFLECTRA [Suspect]
     Active Substance: INFLIXIMAB-DYYB
     Dosage: 400 MG EVERY 6 WEEKS
     Route: 042
  8. CODEINE CONTIN [Concomitant]
     Active Substance: CODEINE SULFATE
     Dosage: 50 MG 1 TABLET, 4X/DAY
  9. LOPRESSOR [Concomitant]
     Active Substance: METOPROLOL TARTRATE
     Dosage: 50 MG 1 TABLET, 2X/DAY
  10. VAGIFEN [Concomitant]
     Active Substance: ESTRADIOL
     Dosage: 25 UG, 2X/WEEK (SUNDAY AND WEDNESDAY)
     Dates: start: 201104
  11. PREDNISONE. [Concomitant]
     Active Substance: PREDNISONE
     Dosage: 5 MG, AS DIRECTED
  12. PREDNISONE. [Concomitant]
     Active Substance: PREDNISONE
     Dosage: 5 MG, AS DIRECTED
  13. VITAMIN D [Concomitant]
     Active Substance: CHOLECALCIFEROL
     Dosage: 1 TABLET, 3X/DAY
  14. INFLECTRA [Suspect]
     Active Substance: INFLIXIMAB-DYYB
     Dosage: 400 MG, (EVERY 0, 2, 6 WEEKS, THEN EVERY 6 WEEKS)
     Route: 042
  15. INFLECTRA [Suspect]
     Active Substance: INFLIXIMAB-DYYB
     Dosage: 400 MG, EVEY 6 WEEKS
     Route: 042
     Dates: start: 20181003, end: 20181003
  16. LASIX [Concomitant]
     Active Substance: FUROSEMIDE
     Dosage: 40 MG 1 TABLET, 1X/DAY AS DIRECTED
     Route: 048
  17. CYMBALTA [Concomitant]
     Active Substance: DULOXETINE HYDROCHLORIDE
     Dosage: 20 MG 2 TABLETS ONCE DAILY
  18. CYMBALTA [Concomitant]
     Active Substance: DULOXETINE HYDROCHLORIDE
     Dosage: 60 MG, UNK
     Route: 048
  19. OMEGA 3-6-9 [Concomitant]
     Active Substance: FISH OIL
     Dosage: 1 TABLET 1200 MG, 3X/DAY
  20. PROBIOTIC [Concomitant]
     Active Substance: PROBIOTICS NOS
     Dosage: 30 BILLION CELLS 1 TABLET DAILY AS NEEDED
  21. CIMETIDINE [Concomitant]
     Active Substance: CIMETIDINE
     Dosage: UNK
  22. PANTOPRAZOLE [Concomitant]
     Active Substance: PANTOPRAZOLE
     Dosage: 40 MG, DISCONTINUED
  23. PREMARIN [Concomitant]
     Active Substance: ESTROGENS, CONJUGATED
     Dosage: UNK
  24. INFLECTRA [Suspect]
     Active Substance: INFLIXIMAB-DYYB
     Dosage: 400 MG EVERY 6 WEEKS
     Route: 042
     Dates: start: 20180228
  25. INFLECTRA [Suspect]
     Active Substance: INFLIXIMAB-DYYB
     Dosage: 400 MG EVERY 6 WEEKS
     Route: 042
     Dates: start: 20180709
  26. INFLECTRA [Suspect]
     Active Substance: INFLIXIMAB-DYYB
     Dosage: 400 MG EVERY 6 WEEKS
     Route: 042
     Dates: start: 20180920
  27. TECTA [Concomitant]
     Active Substance: PANTOPRAZOLE MAGNESIUM
     Dosage: 40 MG 1 TABLET, 2X/DAY
     Dates: start: 201506
  28. FAMOTIDINE. [Concomitant]
     Active Substance: FAMOTIDINE
     Dosage: 40 MG 1 TABLET, 1X/DAY BEFORE BED
     Route: 048
  29. BETADERM [Concomitant]
     Active Substance: BETAMETHASONE VALERATE
     Dosage: UNK, 3X/DAY
  30. BETADERM [Concomitant]
     Active Substance: BETAMETHASONE VALERATE
     Dosage: UNK, 3X/DAY
  31. CALCIUM MAGNESIUM WITH VITAMIN D3 [Concomitant]
     Dosage: CALCIUM 333 MG/MAGNESIUM 167MG/COLECALCIFEROL 133IU (1 TABLET), 3X/DAY
  32. OMEGA 3-6-9 [Concomitant]
     Active Substance: FISH OIL
     Dosage: 1 TABLET 1200 MG, 3X/DAY
  33. BETADINE [Concomitant]
     Active Substance: POVIDONE-IODINE
     Dosage: UNK
  34. CALCIUM [Concomitant]
     Active Substance: CALCIUM
     Dosage: UNK
  35. SIMPONI [Concomitant]
     Active Substance: GOLIMUMAB
     Dosage: 50 MG/0.5ML SYRINGE
  36. SIMPONI [Concomitant]
     Active Substance: GOLIMUMAB
     Dosage: 50 MG/0.5ML SYRINGE
  37. TYLENOL WITH CODEINE [Concomitant]
     Active Substance: ACETAMINOPHEN\CODEINE PHOSPHATE
     Dosage: 300/30 MG CODEINE 8 PER DAY AS NEEDED
     Route: 048
  38. MIRAPEX [Concomitant]
     Active Substance: PRAMIPEXOLE DIHYDROCHLORIDE
     Dosage: 0.25 UNK, UNK
     Route: 048
  39. FAMOTIDINE. [Concomitant]
     Active Substance: FAMOTIDINE
     Dosage: 40 MG 1 TABLET, 1X/DAY BEFORE BED
     Route: 048
  40. LASIX [Concomitant]
     Active Substance: FUROSEMIDE
     Dosage: 40 MG 1 TABLET, 1X/DAY AS DIRECTED
     Route: 048
  41. CYMBALTA [Concomitant]
     Active Substance: DULOXETINE HYDROCHLORIDE
     Dosage: 60 MG, UNK
     Route: 048
  42. FERAMAX [Concomitant]
     Active Substance: IRON\POLYSACCHARIDES
     Dosage: 150 MG 1 TABLET DAILY
     Route: 048
  43. COVERSYL [Concomitant]
     Active Substance: PERINDOPRIL
     Dosage: 2 MG, 1 TABLET, 1X/DAY
  44. CIMETIDINE [Concomitant]
     Active Substance: CIMETIDINE
     Dosage: UNK
  45. PANTOPRAZOLE [Concomitant]
     Active Substance: PANTOPRAZOLE
     Dosage: 40 MG, DISCONTINUED
  46. INFLECTRA [Suspect]
     Active Substance: INFLIXIMAB-DYYB
     Dosage: 400 MG EVERY 8 WEEKS
     Route: 042
  47. CODEINE CONTIN [Concomitant]
     Active Substance: CODEINE SULFATE
     Dosage: 50 MG 1 TABLET, 4X/DAY
  48. MIRAPEX [Concomitant]
     Active Substance: PRAMIPEXOLE DIHYDROCHLORIDE
     Dosage: 0.125 MG, UNK
  49. MIRAPEX [Concomitant]
     Active Substance: PRAMIPEXOLE DIHYDROCHLORIDE
     Dosage: 0.25 UNK, UNK
     Route: 048
  50. PROBIOTIC [Concomitant]
     Active Substance: PROBIOTICS NOS
     Dosage: 30 BILLION CELLS 1 TABLET DAILY AS NEEDED
  51. LEFLUNOMIDE. [Concomitant]
     Active Substance: LEFLUNOMIDE
     Dosage: 20 MG, UNK
     Route: 048
     Dates: start: 20160613
  52. ESTRADIOL. [Concomitant]
     Active Substance: ESTRADIOL
     Dosage: UNK
     Route: 048
  53. ESTRADIOL. [Concomitant]
     Active Substance: ESTRADIOL
     Dosage: UNK
     Route: 048
  54. INFLECTRA [Suspect]
     Active Substance: INFLIXIMAB-DYYB
     Dosage: 400 MG EVERY 6 WEEKS
     Route: 042
     Dates: start: 20180119
  55. INFLECTRA [Suspect]
     Active Substance: INFLIXIMAB-DYYB
     Dosage: 400 MG EVERY 6 WEEKS
     Route: 042
     Dates: start: 20180822
  56. TYLENOL WITH CODEINE [Concomitant]
     Active Substance: ACETAMINOPHEN\CODEINE PHOSPHATE
     Dosage: 300/30 MG CODEINE 8 PER DAY AS NEEDED
     Route: 048
  57. LOPRESSOR [Concomitant]
     Active Substance: METOPROLOL TARTRATE
     Dosage: 50 MG 1 TABLET, 2X/DAY
  58. CYMBALTA [Concomitant]
     Active Substance: DULOXETINE HYDROCHLORIDE
     Dosage: 20 MG 2 TABLETS ONCE DAILY
  59. DANTRIUM [Concomitant]
     Active Substance: DANTROLENE SODIUM
     Dosage: 25 MG, AS NEEDED (SELDOM USED)
     Route: 048
  60. COVERSYL [Concomitant]
     Active Substance: PERINDOPRIL
     Dosage: 2 MG, 1 TABLET, 1X/DAY
  61. CALCIUM [Concomitant]
     Active Substance: CALCIUM
     Dosage: UNK
  62. METOPROLOL. [Concomitant]
     Active Substance: METOPROLOL
     Dosage: 50 MG, BID
     Route: 048
     Dates: start: 201201
  63. PREMARIN [Concomitant]
     Active Substance: ESTROGENS, CONJUGATED
     Dosage: UNK
  64. VITAMIN D [Concomitant]
     Active Substance: CHOLECALCIFEROL
     Dosage: UNK
  65. ADALAT [Concomitant]
     Active Substance: NIFEDIPINE
     Dosage: 60 MG, DAILY
  66. INFLECTRA [Suspect]
     Active Substance: INFLIXIMAB-DYYB
     Indication: PSORIATIC ARTHROPATHY
     Dosage: 400 MG, EVERY 2, 6 WEEKS, THEN EVERY 8 WEEKS FOR 12 MONTHS
     Route: 042
     Dates: start: 20160622, end: 201611
  67. DANTRIUM [Concomitant]
     Active Substance: DANTROLENE SODIUM
     Dosage: 25 MG, AS NEEDED (SELDOM USED)
     Route: 048
  68. CALCIUM MAGNESIUM WITH VITAMIN D3 [Concomitant]
     Dosage: CALCIUM 333 MG/MAGNESIUM 167 MG /COLECALCIFEROL 133IU ( 1 TABLET), 3X/DAY
  69. FERAMAX [Concomitant]
     Active Substance: IRON\POLYSACCHARIDES
     Dosage: 150 MG 1 TABLET DAILY
     Route: 048
  70. MAGNESIUM [Concomitant]
     Active Substance: MAGNESIUM
     Dosage: 1 TABLET, 3X/DAY
  71. MAGNESIUM [Concomitant]
     Active Substance: MAGNESIUM
     Dosage: UNK
  72. NITROLINGUAL [Concomitant]
     Active Substance: NITROGLYCERIN
     Dosage: 0.4 MG/DOSE AS NEEDED
     Route: 048
  73. LYRICA [Concomitant]
     Active Substance: PREGABALIN
     Dosage: UNK
     Route: 048
     Dates: start: 2017

REACTIONS (28)
  - Pneumonia [Unknown]
  - Intestinal stenosis [Unknown]
  - Psoriasis [Not Recovered/Not Resolved]
  - Muscle spasms [Not Recovered/Not Resolved]
  - Bronchitis [Not Recovered/Not Resolved]
  - Product use issue [Unknown]
  - Ulcer [Unknown]
  - Product use issue [Unknown]
  - Asthenia [Unknown]
  - Enteritis infectious [Unknown]
  - Melanocytic naevus [Recovered/Resolved]
  - Heart rate increased [Unknown]
  - Influenza [Not Recovered/Not Resolved]
  - Cough [Recovering/Resolving]
  - Drug effect incomplete [Not Recovered/Not Resolved]
  - Hepatic enzyme increased [Recovered/Resolved]
  - Intervertebral disc protrusion [Unknown]
  - Neuralgia [Unknown]
  - Sciatica [Not Recovered/Not Resolved]
  - Hypertension [Recovering/Resolving]
  - Muscular weakness [Not Recovered/Not Resolved]
  - Nausea [Unknown]
  - Spinal column stenosis [Unknown]
  - Condition aggravated [Not Recovered/Not Resolved]
  - Osteonecrosis of jaw [Unknown]
  - Stress [Unknown]
  - Blood pressure fluctuation [Unknown]
  - Abdominal pain [Unknown]

NARRATIVE: CASE EVENT DATE: 2016
